FAERS Safety Report 18736870 (Version 2)
Quarter: 2021Q1

REPORT INFORMATION
  Report Type: Report from Study
  Country: US (occurrence: US)
  Receive Date: 20210113
  Receipt Date: 20210225
  Transmission Date: 20210419
  Serious: Yes (Death, Life-Threatening, Hospitalization)
  Sender: FDA-Public Use
  Company Number: US-PFIZER INC-2020482383

PATIENT
  Age: 69 Year
  Sex: Female
  Weight: 69.3 kg

DRUGS (2)
  1. VYXEOS [Suspect]
     Active Substance: CYTARABINE\DAUNORUBICIN
     Indication: ACUTE MYELOID LEUKAEMIA
     Dosage: 100 MG/M2, ON DAY 1, DAY 3 AND DAY 5
     Route: 042
     Dates: start: 20201125, end: 20201129
  2. MYLOTARG [Suspect]
     Active Substance: GEMTUZUMAB OZOGAMICIN
     Indication: ACUTE MYELOID LEUKAEMIA
     Dosage: 3 MG/M2, ON DAY 4 AND DAY 7
     Route: 042
     Dates: start: 20201128, end: 20201201

REACTIONS (3)
  - Haemorrhage intracranial [Fatal]
  - Sepsis [Fatal]
  - Hydrocephalus [Fatal]

NARRATIVE: CASE EVENT DATE: 20201205
